FAERS Safety Report 20616282 (Version 1)
Quarter: 2022Q1

REPORT INFORMATION
  Report Type: Spontaneous
  Country: US (occurrence: None)
  Receive Date: 20220319
  Receipt Date: 20220319
  Transmission Date: 20220423
  Serious: Yes (Hospitalization)
  Sender: FDA-Public Use
  Company Number: None

PATIENT
  Age: 35 Year
  Sex: Female
  Weight: 47.7 kg

DRUGS (1)
  1. CISPLATIN [Suspect]
     Active Substance: CISPLATIN
     Dates: end: 20220301

REACTIONS (11)
  - Diarrhoea [None]
  - Nausea [None]
  - Vomiting [None]
  - Colitis [None]
  - Gastritis [None]
  - Urinary retention [None]
  - Dizziness [None]
  - Hypotension [None]
  - Dysphagia [None]
  - Cystitis [None]
  - Hypomagnesaemia [None]

NARRATIVE: CASE EVENT DATE: 20220302
